FAERS Safety Report 11285648 (Version 2)
Quarter: 2015Q3

REPORT INFORMATION
  Report Type: Report from Study
  Country: HU (occurrence: HU)
  Receive Date: 20150721
  Receipt Date: 20150903
  Transmission Date: 20151125
  Serious: Yes (Hospitalization)
  Sender: FDA-Public Use
  Company Number: HU-ABBVIE-15K-076-1427531-00

PATIENT
  Age: 62 Year
  Sex: Female

DRUGS (6)
  1. NARVA [Concomitant]
     Active Substance: INDAPAMIDE
     Indication: HYPERTENSION
     Route: 048
     Dates: start: 2010
  2. NEBILET [Concomitant]
     Active Substance: NEBIVOLOL
     Indication: ARRHYTHMIA
     Route: 048
     Dates: start: 2010
  3. HUMIRA [Suspect]
     Active Substance: ADALIMUMAB
     Indication: ANKYLOSING SPONDYLITIS
     Route: 058
     Dates: start: 201502, end: 201506
  4. MOVALIS [Concomitant]
     Active Substance: MELOXICAM
     Indication: PRODUCT USED FOR UNKNOWN INDICATION
     Dates: start: 201508
  5. PANTACID [Concomitant]
     Indication: GASTROOESOPHAGEAL REFLUX DISEASE
     Route: 048
     Dates: start: 2010
  6. LIPIDIL [Concomitant]
     Active Substance: FENOFIBRATE
     Indication: BLOOD CHOLESTEROL INCREASED
     Route: 048
     Dates: start: 2010

REACTIONS (1)
  - Oral neoplasm [Unknown]

NARRATIVE: CASE EVENT DATE: 201504
